FAERS Safety Report 10665020 (Version 1)
Quarter: 2014Q4

REPORT INFORMATION
  Report Type: Report from Study
  Country: BR (occurrence: BR)
  Receive Date: 20141219
  Receipt Date: 20141219
  Transmission Date: 20150529
  Serious: Yes (Death, Hospitalization, Other)
  Sender: FDA-Public Use
  Company Number: PHHY2014BR166018

PATIENT
  Age: 75 Year
  Sex: Male
  Weight: 82 kg

DRUGS (3)
  1. EXELON [Suspect]
     Active Substance: RIVASTIGMINE TARTRATE
     Indication: DEMENTIA ALZHEIMER^S TYPE
     Route: 065
  2. INSULIN [Concomitant]
     Active Substance: INSULIN NOS
     Indication: DIABETES MELLITUS
     Dosage: UNK OT, QD (AFTER LUNCH)
     Route: 065
  3. DIAMICRON [Concomitant]
     Active Substance: GLICLAZIDE
     Indication: DIABETES MELLITUS
     Route: 065

REACTIONS (13)
  - Dyspnoea [Unknown]
  - Blood glucose increased [Unknown]
  - Peripheral coldness [Unknown]
  - Cardiac disorder [Fatal]
  - Renal failure [Fatal]
  - Cardiac arrest [Unknown]
  - Diabetes mellitus inadequate control [Unknown]
  - Nervousness [Unknown]
  - Pneumonia aspiration [Fatal]
  - Skin discolouration [Unknown]
  - Pyrexia [Unknown]
  - Irritability [Unknown]
  - Aggression [Unknown]

NARRATIVE: CASE EVENT DATE: 201409
